FAERS Safety Report 6621652-1 (Version None)
Quarter: 2010Q1

REPORT INFORMATION
  Report Type: 
  Country: None (occurrence: None)
  Receive Date: 20100309
  Receipt Date: 20100225
  Transmission Date: 20100710
  Serious: Yes (Hospitalization, Other)
  Sender: FDA-Public Use
  Company Number: BR-GENENTECH-293400

PATIENT
  Sex: Male
  Weight: 73 kg

DRUGS (7)
  1. RITUXIMAB [Suspect]
     Indication: VASCULITIS
     Dosage: 500 MG/50ML,
     Route: 042
     Dates: start: 20090301
  2. CYCLOBENZAPRINE HYDROCHLORIDE [Concomitant]
     Indication: DRUG USE FOR UNKNOWN INDICATION
     Dosage: 10 MG, UNK
  3. SERETIDE [Concomitant]
     Indication: ASTHMA
     Dosage: UNK
  4. OMEPRAZOLE [Concomitant]
     Indication: DRUG USE FOR UNKNOWN INDICATION
     Dosage: UNK
  5. ASPIRIN [Concomitant]
     Indication: DRUG USE FOR UNKNOWN INDICATION
     Dosage: 300 MG, UNK
  6. VYTORIN [Concomitant]
     Indication: BLOOD CHOLESTEROL ABNORMAL
     Dosage: 10 MG, UNK
  7. FENOFIBRATE [Concomitant]
     Indication: BLOOD CHOLESTEROL ABNORMAL
     Dosage: 250 MG, UNK

REACTIONS (5)
  - AMNESIA [None]
  - DELUSION [None]
  - HOSPITALISATION [None]
  - PAIN [None]
  - VASCULITIS [None]
